FAERS Safety Report 5750618-9 (Version None)
Quarter: 2008Q2

REPORT INFORMATION
  Report Type: 
  Country: None (occurrence: None)
  Receive Date: 20080528
  Receipt Date: 20080522
  Transmission Date: 20081010
  Serious: Yes (Life-Threatening)
  Sender: FDA-Public Use
  Company Number: FR-AVENTIS-200811901FR

PATIENT
  Age: 58 Year

DRUGS (4)
  1. LOVENOX [Suspect]
     Route: 042
     Dates: start: 20080301, end: 20080407
  2. LOVENOX [Suspect]
     Route: 042
     Dates: start: 20080408, end: 20080409
  3. TAZOCILLINE [Suspect]
     Indication: SUPERINFECTION
     Route: 042
     Dates: start: 20080313, end: 20080408
  4. MOPRAL [Suspect]
     Route: 048
     Dates: end: 20080101

REACTIONS (1)
  - AGRANULOCYTOSIS [None]
